FAERS Safety Report 24313146 (Version 1)
Quarter: 2024Q3

REPORT INFORMATION
  Report Type: Spontaneous
  Country: US (occurrence: None)
  Receive Date: 20240912
  Receipt Date: 20240912
  Transmission Date: 20241017
  Serious: No
  Sender: Public
  Company Number: None

PATIENT
  Age: 96 Year
  Sex: Male
  Weight: 90 kg

DRUGS (12)
  1. CEFTRIAXONE [Suspect]
     Active Substance: CEFTRIAXONE\CEFTRIAXONE SODIUM
     Indication: Urinary tract infection
     Dates: start: 20240908, end: 20240909
  2. METOPROLOL [Concomitant]
     Active Substance: METOPROLOL
  3. SIMVASTATIN [Concomitant]
     Active Substance: SIMVASTATIN
  4. LISINOPRIL [Concomitant]
     Active Substance: LISINOPRIL
  5. FARXIGA [Concomitant]
     Active Substance: DAPAGLIFLOZIN PROPANEDIOL
  6. DOXAZOSIN [Concomitant]
     Active Substance: DOXAZOSIN MESYLATE
  7. AMIODARONE [Concomitant]
     Active Substance: AMIODARONE
  8. WARFARIN [Concomitant]
     Active Substance: WARFARIN
  9. UNSPECIFIED INGREDIENT [Concomitant]
     Active Substance: UNSPECIFIED INGREDIENT
  10. ASPIRIN [Concomitant]
     Active Substance: ASPIRIN
  11. stool softener Colace [Concomitant]
  12. VITAMINS [Concomitant]
     Active Substance: VITAMINS

REACTIONS (3)
  - Rash [None]
  - Rash [None]
  - Paraesthesia [None]

NARRATIVE: CASE EVENT DATE: 20240908
